FAERS Safety Report 7281449-9 (Version None)
Quarter: 2011Q1

REPORT INFORMATION
  Report Type: 
  Country: None (occurrence: None)
  Receive Date: 20110208
  Receipt Date: 20110127
  Transmission Date: 20110831
  Serious: Yes (Hospitalization)
  Sender: FDA-Public Use
  Company Number: US-ASTRAZENECA-2011SE03111

PATIENT
  Age: 55 Year
  Sex: Female

DRUGS (12)
  1. COMBIVENT [Concomitant]
  2. SEROQUEL [Suspect]
     Route: 048
  3. LORAZEPAM [Concomitant]
  4. SEROQUEL [Suspect]
     Indication: SLEEP DISORDER
     Route: 048
  5. SEROQUEL [Suspect]
     Route: 048
  6. CLONAZEPAM [Concomitant]
  7. FLOVENT [Concomitant]
  8. VICODIN [Concomitant]
  9. SEROQUEL [Suspect]
     Indication: BIPOLAR DISORDER
     Route: 048
  10. RIBOFLAVIN TAB [Concomitant]
  11. 2 FLUID PILLS [Concomitant]
  12. FAMOTIDINE [Concomitant]

REACTIONS (6)
  - PNEUMONIA [None]
  - NEOPLASM MALIGNANT [None]
  - HEPATITIS C [None]
  - DRUG INEFFECTIVE FOR UNAPPROVED INDICATION [None]
  - INITIAL INSOMNIA [None]
  - POOR QUALITY SLEEP [None]
